FAERS Safety Report 8283881-3 (Version None)
Quarter: 2012Q2

REPORT INFORMATION
  Report Type: 
  Country: None (occurrence: None)
  Receive Date: 20120413
  Receipt Date: 20120228
  Transmission Date: 20120825
  Serious: Yes (Other)
  Sender: FDA-Public Use
  Company Number: US-ASTRAZENECA-2012SE09545

PATIENT
  Age: 58 Year
  Sex: Female

DRUGS (3)
  1. NEXIUM [Suspect]
     Route: 048
  2. ALTERNATIVE MEDICATION [Concomitant]
  3. ANTACIDS [Concomitant]

REACTIONS (6)
  - CONSTIPATION [None]
  - HIATUS HERNIA [None]
  - GASTROOESOPHAGEAL REFLUX DISEASE [None]
  - FOOT FRACTURE [None]
  - DRUG DOSE OMISSION [None]
  - ADVERSE EVENT [None]
